FAERS Safety Report 9955845 (Version 1)
Quarter: 2014Q1

REPORT INFORMATION
  Report Type: Report from Study
  Country: US (occurrence: US)
  Receive Date: 20140304
  Receipt Date: 20140304
  Transmission Date: 20141002
  Serious: No
  Sender: FDA-Public Use
  Company Number: US-ABBVIE-13P-163-1086370-00

PATIENT
  Age: 51 Year
  Sex: Female
  Weight: 128.03 kg

DRUGS (20)
  1. HUMIRA [Suspect]
     Indication: CROHN^S DISEASE
     Dosage: 160 MILLIGRAM LOADING DOSE
     Dates: start: 20130506
  2. LORTAB [Concomitant]
     Indication: BACK PAIN
     Dosage: 10 MG EVERY 6-8 HRS AS NEEDED
  3. LOVASTATIN [Concomitant]
     Indication: BLOOD CHOLESTEROL INCREASED
     Dosage: 40 MG AT BEDTIME
  4. BACLOFEN [Concomitant]
     Indication: MUSCLE SPASMS
     Dosage: 10 MG 3 TIMES DAILY
  5. XANAX [Concomitant]
     Indication: ANXIETY
     Dosage: 0.5 MG THREE TIMES DAILY
  6. TRAZODONE [Concomitant]
     Indication: DEPRESSION
     Dosage: 150 MG ONE AND A HALF TABE AT BEDTIME
  7. TRAZODONE [Concomitant]
     Indication: INSOMNIA
  8. PROZAC [Concomitant]
     Indication: DEPRESSION
     Dosage: 40 MG AT BEDTIME
  9. FOLIC ACID [Concomitant]
     Indication: VITAMIN SUPPLEMENTATION
     Dosage: 1 MG DAILY
  10. FOLIC ACID [Concomitant]
     Indication: FOLATE DEFICIENCY
  11. VITAMIN B12 [Concomitant]
     Indication: VITAMIN B12 DEFICIENCY
  12. VITAMIN B12 [Concomitant]
     Indication: PERNICIOUS ANAEMIA
  13. DEPO-ESTRADIOL [Concomitant]
     Indication: HORMONE REPLACEMENT THERAPY
     Dosage: 1 CC ONCE A MONTH
  14. METHOTREXATE [Concomitant]
     Indication: CROHN^S DISEASE
  15. VITAMIN D3 [Concomitant]
     Indication: VITAMIN SUPPLEMENTATION
     Dosage: DAILY
  16. CALCIUM [Concomitant]
     Indication: MINERAL SUPPLEMENTATION
     Dosage: DAILY
  17. MULTIVITAMIN [Concomitant]
     Indication: VITAMIN SUPPLEMENTATION
     Dosage: DAILY
  18. MELATONIN [Concomitant]
     Indication: SUPPLEMENTATION THERAPY
  19. VITAMIN E [Concomitant]
     Indication: VITAMIN SUPPLEMENTATION
  20. STEROID INJECTION [Concomitant]
     Indication: PRODUCT USED FOR UNKNOWN INDICATION
     Dosage: TO LUMBAR REGION OF BACK

REACTIONS (2)
  - Injection site pain [Recovered/Resolved]
  - Diarrhoea [Not Recovered/Not Resolved]
